FAERS Safety Report 5057970-0 (Version None)
Quarter: 2006Q3

REPORT INFORMATION
  Report Type: 
  Country: None (occurrence: None)
  Receive Date: 20060721
  Receipt Date: 20060426
  Transmission Date: 20061208
  Serious: No
  Sender: FDA-Public Use
  Company Number: US-GLAXOSMITHKLINE-A0603393A

PATIENT
  Age: 61 Year
  Sex: Female

DRUGS (5)
  1. AVANDIA [Suspect]
     Route: 048
  2. METFORMIN [Suspect]
  3. DETROL LA [Concomitant]
  4. DIAZIDE [Concomitant]
  5. LIPITOR [Concomitant]

REACTIONS (2)
  - BLOOD GLUCOSE INCREASED [None]
  - THERAPEUTIC RESPONSE DECREASED [None]
